FAERS Safety Report 10133224 (Version 1)
Quarter: 2014Q2

REPORT INFORMATION
  Report Type: Report from Study
  Country: US (occurrence: US)
  Receive Date: 20140428
  Receipt Date: 20140428
  Transmission Date: 20141212
  Serious: Yes (Hospitalization, Other)
  Sender: FDA-Public Use
  Company Number: US-ABBVIE-14P-163-1227380-00

PATIENT
  Age: 56 Year
  Sex: Female
  Weight: 47.22 kg

DRUGS (7)
  1. HUMIRA [Suspect]
     Indication: PSORIASIS
     Route: 058
     Dates: start: 201207, end: 201305
  2. HUMIRA [Suspect]
     Indication: PSORIATIC ARTHROPATHY
     Route: 058
     Dates: start: 2013
  3. HUMIRA [Suspect]
     Indication: RHEUMATOID ARTHRITIS
  4. DIAZEPAM [Concomitant]
     Indication: ANXIETY
  5. OXYCODONE [Concomitant]
     Indication: PAIN
  6. MULTIVITAMIN [Concomitant]
     Indication: VITAMIN SUPPLEMENTATION
     Dosage: DAILY
  7. FISH OIL [Concomitant]
     Indication: SUPPLEMENTATION THERAPY
     Dosage: DAILY

REACTIONS (9)
  - Intracranial aneurysm [Recovering/Resolving]
  - Headache [Recovered/Resolved]
  - Basal cell carcinoma [Recovered/Resolved]
  - Trigger finger [Unknown]
  - Arthralgia [Not Recovered/Not Resolved]
  - Gait disturbance [Not Recovered/Not Resolved]
  - Synovial cyst [Unknown]
  - Osteoarthritis [Unknown]
  - Lacrimation increased [Unknown]
